FAERS Safety Report 8860484 (Version 5)
Quarter: 2013Q2

REPORT INFORMATION
  Report Type: Spontaneous
  Country: JP (occurrence: JP)
  Receive Date: 20121025
  Receipt Date: 20130408
  Transmission Date: 20140414
  Serious: Yes (Other)
  Sender: FDA-Public Use
  Company Number: JP-MPIJNJ-2012-07233

PATIENT
  Sex: 0

DRUGS (6)
  1. VELCADE [Suspect]
     Indication: PLASMA CELL MYELOMA
     Dosage: UNK
     Route: 042
     Dates: start: 200810, end: 200903
  2. VELCADE [Suspect]
     Dosage: UNK
     Route: 042
     Dates: start: 201107
  3. DEXAMETHASONE [Concomitant]
     Indication: PLASMA CELL MYELOMA
     Dosage: UNK
     Route: 042
     Dates: start: 200810, end: 200903
  4. DEXAMETHASONE [Concomitant]
     Dosage: UNK
     Route: 042
     Dates: start: 201107
  5. VINCRISTINE SULFATE [Concomitant]
  6. DOXORUBICIN HYDROCHLORIDE [Concomitant]

REACTIONS (1)
  - Hepatitis B [Not Recovered/Not Resolved]
